FAERS Safety Report 5305912-2 (Version None)
Quarter: 2007Q2

REPORT INFORMATION
  Report Type: 
  Country: None (occurrence: None)
  Receive Date: 20070424
  Receipt Date: 20070416
  Transmission Date: 20071010
  Serious: Yes (Other)
  Sender: FDA-Public Use
  Company Number: GB-GLAXOSMITHKLINE-B0462045A

PATIENT
  Age: 68 Year
  Sex: Male
  Weight: 104 kg

DRUGS (9)
  1. FLIXOTIDE [Suspect]
     Indication: ASTHMA
     Dosage: 1BLS TWICE PER DAY
     Route: 055
     Dates: start: 19970301
  2. AMLODIPINE [Concomitant]
  3. SIMVASTATIN [Concomitant]
  4. GLICLAZIDE [Concomitant]
  5. QUININE [Concomitant]
  6. LISINOPRIL [Concomitant]
  7. ASPIRIN [Concomitant]
  8. TAMSULOSIN HCL [Concomitant]
  9. VENTOLIN [Concomitant]
     Route: 055

REACTIONS (4)
  - ABNORMAL DREAMS [None]
  - AGGRESSION [None]
  - HALLUCINATION, VISUAL [None]
  - NIGHTMARE [None]
